FAERS Safety Report 24569015 (Version 1)
Quarter: 2024Q4

REPORT INFORMATION
  Report Type: Spontaneous
  Country: US (occurrence: None)
  Receive Date: 20241030
  Receipt Date: 20241030
  Transmission Date: 20250114
  Serious: Yes (Other)
  Sender: Public
  Company Number: None

PATIENT
  Age: 55 Year
  Sex: Female
  Weight: 63 kg

DRUGS (1)
  1. DUPIXENT [Suspect]
     Active Substance: DUPILUMAB
     Indication: Dermatitis
     Dosage: OTHER FREQUENCY : ONCE EVERY 2 WEEKS;?
     Route: 058

REACTIONS (3)
  - Diarrhoea haemorrhagic [None]
  - Dyschezia [None]
  - Therapy cessation [None]

NARRATIVE: CASE EVENT DATE: 20241030
